FAERS Safety Report 6283559-1 (Version None)
Quarter: 2009Q3

REPORT INFORMATION
  Report Type: 
  Country: None (occurrence: None)
  Receive Date: 20090722
  Receipt Date: 20090722
  Transmission Date: 20100115
  Serious: Yes (Other)
  Sender: FDA-Public Use
  Company Number: None

PATIENT
  Age: 78 Year
  Sex: Female
  Weight: 76.6579 kg

DRUGS (1)
  1. LAMISIL [Suspect]
     Indication: SKIN CHAPPED
     Dosage: 250 MG QD ORAL (047)
     Route: 048
     Dates: start: 20090603, end: 20090630

REACTIONS (6)
  - ANXIETY [None]
  - CONFUSIONAL STATE [None]
  - DISORIENTATION [None]
  - DRUG HYPERSENSITIVITY [None]
  - EMOTIONAL DISTRESS [None]
  - SKIN EXFOLIATION [None]
